FAERS Safety Report 7842998-5 (Version None)
Quarter: 2011Q4

REPORT INFORMATION
  Report Type: 
  Country: None (occurrence: None)
  Receive Date: 20111025
  Receipt Date: 20111013
  Transmission Date: 20120403
  Serious: No
  Sender: FDA-Public Use
  Company Number: RS-NOVOPROD-337260

PATIENT

DRUGS (9)
  1. BLINDED PLACEBO FLEXPEN [Suspect]
     Indication: OBESITY
     Dosage: 3 MG, QD
     Route: 058
     Dates: start: 20110830, end: 20111008
  2. TOLYCAR [Concomitant]
     Dosage: 4 G, QD
     Dates: start: 20111008, end: 20111010
  3. BISOPROLOL [Concomitant]
     Indication: HYPERTENSION
     Dosage: 2.5 MG, QD
     Dates: start: 20100901
  4. BLINDED NO DRUG GIVEN [Suspect]
     Indication: OBESITY
     Dosage: 3 MG, QD
     Route: 058
     Dates: start: 20110830, end: 20111008
  5. BLINDED UNKNOWN [Suspect]
     Indication: OBESITY
     Dosage: 3 MG, QD
     Route: 058
     Dates: start: 20110830, end: 20111008
  6. FOSINOPRIL SODIUM [Concomitant]
     Indication: HYPERTENSION
     Dosage: 5 MG, QD
     Dates: start: 20100901
  7. CONTROLOC                          /01263201/ [Concomitant]
     Dosage: 40 MG, QD
     Dates: start: 20111008
  8. BARALGETAS [Concomitant]
     Dosage: 500 MG, QD
     Dates: start: 20111008, end: 20111010
  9. BLINDED LIRAGLUTIDE FLEXPEN [Suspect]
     Indication: OBESITY
     Dosage: 3 MG, QD
     Route: 058
     Dates: start: 20110830, end: 20111008

REACTIONS (1)
  - PANCREATITIS ACUTE [None]
